FAERS Safety Report 18035190 (Version 1)
Quarter: 2020Q3

REPORT INFORMATION
  Report Type: Other
  Country: GB (occurrence: GB)
  Receive Date: 20200717
  Receipt Date: 20200717
  Transmission Date: 20201103
  Serious: Yes (Life-Threatening, Hospitalization, Other)
  Sender: FDA-Public Use
  Company Number: GB-CELLTRION INC.-2020GB024411

PATIENT

DRUGS (3)
  1. PHENOXYMETHYLPENICILLIN [Concomitant]
     Active Substance: PENICILLIN V
  2. AZATHIOPRINE. [Concomitant]
     Active Substance: AZATHIOPRINE
  3. INFLIXIMAB (UNKNOWN) [Suspect]
     Active Substance: INFLIXIMAB
     Indication: COLITIS ULCERATIVE
     Route: 042

REACTIONS (9)
  - Mass [Unknown]
  - Vomiting [Unknown]
  - Nausea [Unknown]
  - Dyspnoea [Unknown]
  - Night sweats [Unknown]
  - Abnormal loss of weight [Unknown]
  - Pulmonary tuberculosis [Unknown]
  - Orthopnoea [Unknown]
  - Tuberculosis of central nervous system [Unknown]
